FAERS Safety Report 9402383 (Version 4)
Quarter: 2013Q3

REPORT INFORMATION
  Report Type: Spontaneous
  Country: NL (occurrence: NL)
  Receive Date: 20130716
  Receipt Date: 20130829
  Transmission Date: 20140515
  Serious: Yes (Hospitalization, Other)
  Sender: FDA-Public Use
  Company Number: NL-ELI_LILLY_AND_COMPANY-NL201307004370

PATIENT
  Age: 61 Year
  Sex: Female

DRUGS (6)
  1. OLANZAPINE [Suspect]
     Indication: PSYCHOTIC DISORDER
     Dosage: 15 MG, UNKNOWN
     Dates: start: 201211
  2. OLANZAPINE [Suspect]
     Dosage: 10 MG, UNKNOWN
     Dates: start: 201204, end: 201208
  3. OLANZAPINE [Suspect]
     Indication: PSYCHOTIC DISORDER
     Dosage: 1 DF, UNKNOWN
     Dates: start: 201204, end: 201208
  4. OLANZAPINE [Suspect]
     Dosage: 15 MG, UNK
     Dates: start: 201211
  5. OMEPRAZOLE [Concomitant]
     Dosage: 40 MG, QD
  6. TRYPTIZOL                          /00002202/ [Concomitant]
     Dosage: 100 MG, BID

REACTIONS (1)
  - Pulmonary embolism [Recovering/Resolving]
